FAERS Safety Report 10262014 (Version 2)
Quarter: 2014Q2

REPORT INFORMATION
  Report Type: Report from Study
  Country: JP (occurrence: JP)
  Receive Date: 20140626
  Receipt Date: 20140626
  Transmission Date: 20141212
  Serious: Yes (Hospitalization)
  Sender: FDA-Public Use
  Company Number: JP-SA-THYM-1003265

PATIENT
  Age: 62 Year
  Sex: Male
  Weight: 60 kg

DRUGS (13)
  1. THYMOGLOBULINE [Suspect]
     Indication: KIDNEY TRANSPLANT REJECTION
     Dosage: 87.5 MG, QD
     Route: 065
     Dates: start: 20110721, end: 20110727
  2. TACROLIMUS [Suspect]
     Indication: PRODUCT USED FOR UNKNOWN INDICATION
     Dosage: UNK
     Route: 048
  3. ACETAMINOPHEN [Concomitant]
     Dosage: UNK
     Route: 065
  4. CHLORPHENAMINE MALEATE [Concomitant]
     Dosage: UNK
     Route: 065
  5. MYCOPHENOLATE MOFETIL [Concomitant]
     Dosage: UNK
     Route: 065
  6. PREDNISOLONE [Concomitant]
     Dosage: UNK
     Route: 065
  7. METHYLPREDNISOLONE SODIUM SUCCINATE [Concomitant]
     Dosage: UNK
     Route: 065
  8. METHYLPREDNISOLONE SODIUM SUCCINATE [Concomitant]
     Dosage: UNK
     Route: 065
  9. BASILIXIMAB [Concomitant]
     Dosage: UNK
     Route: 065
  10. RITUXIMAB [Concomitant]
     Dosage: UNK
     Route: 065
  11. LANSOPRAZOLE [Concomitant]
     Dosage: UNK
     Route: 065
  12. FUROSEMIDE [Concomitant]
     Dosage: UNK
     Route: 065
  13. VALGANCICLOVIR HYDROCHLORIDE [Concomitant]
     Dosage: UNK
     Route: 065

REACTIONS (1)
  - Malaise [Recovered/Resolved]
